FAERS Safety Report 25055098 (Version 13)
Quarter: 2025Q4

REPORT INFORMATION
  Report Type: Report from Study
  Country: CO (occurrence: CO)
  Receive Date: 20250308
  Receipt Date: 20251009
  Transmission Date: 20260118
  Serious: Yes (Other)
  Sender: TAKEDA
  Company Number: CO-TAKEDA-2024TUS118324

PATIENT
  Age: 58 Year
  Sex: Female
  Weight: 78 kg

DRUGS (2)
  1. VEDOLIZUMAB [Suspect]
     Active Substance: VEDOLIZUMAB
     Indication: Crohn^s disease
     Dosage: 300 MILLIGRAM
  2. LEVOTHYROXINE [Suspect]
     Active Substance: LEVOTHYROXINE
     Indication: Product used for unknown indication
     Dosage: UNK

REACTIONS (31)
  - Pneumonia [Unknown]
  - Crohn^s disease [Unknown]
  - Rheumatoid arthritis [Unknown]
  - Limb discomfort [Not Recovered/Not Resolved]
  - Headache [Recovered/Resolved]
  - Bone pain [Unknown]
  - Ocular hyperaemia [Unknown]
  - Treatment noncompliance [Unknown]
  - Discouragement [Recovered/Resolved]
  - Poor venous access [Unknown]
  - Dermatitis [Recovering/Resolving]
  - Diarrhoea [Recovering/Resolving]
  - Weight increased [Unknown]
  - Body height decreased [Unknown]
  - Tuberculin test positive [Unknown]
  - Uterine leiomyoma [Unknown]
  - Uterine polyp [Unknown]
  - Diverticulum [Unknown]
  - Umbilical hernia [Unknown]
  - Adnexa uteri mass [Unknown]
  - Inappropriate schedule of product administration [Unknown]
  - Depressed mood [Unknown]
  - Abdominal pain [Unknown]
  - Vomiting [Recovering/Resolving]
  - Abdominal distension [Unknown]
  - Flatulence [Unknown]
  - Pyrexia [Unknown]
  - Influenza [Unknown]
  - Generalised oedema [Unknown]
  - Endometrial thickening [Unknown]
  - Ovarian mass [Unknown]

NARRATIVE: CASE EVENT DATE: 20241120
